FAERS Safety Report 7719185-4 (Version None)
Quarter: 2011Q3

REPORT INFORMATION
  Report Type: 
  Country: None (occurrence: None)
  Receive Date: 20110830
  Receipt Date: 20110824
  Transmission Date: 20111222
  Serious: Yes (Hospitalization)
  Sender: FDA-Public Use
  Company Number: PHHY2011GB75658

PATIENT
  Age: 92 Year
  Sex: Female

DRUGS (5)
  1. GABAPENTIN [Concomitant]
  2. CODEINE SULFATE [Suspect]
     Indication: PAIN
     Dosage: 15 MG, QID
     Route: 048
  3. CALCICHEW D3 [Concomitant]
  4. MIRTAZAPINE [Concomitant]
  5. RISEDRONATE SODIUM [Concomitant]

REACTIONS (1)
  - FAECALOMA [None]
